FAERS Safety Report 22334483 (Version 1)
Quarter: 2023Q2

REPORT INFORMATION
  Report Type: Spontaneous
  Country: US (occurrence: US)
  Receive Date: 20230517
  Receipt Date: 20230517
  Transmission Date: 20230722
  Serious: No
  Sender: FDA-Public Use
  Company Number: US-SA-SAC20230516000148

PATIENT
  Age: 60 Year
  Sex: Female

DRUGS (3)
  1. DUPIXENT [Suspect]
     Active Substance: DUPILUMAB
     Indication: Asthma
     Dosage: 300 MG, OTHER
     Route: 058
     Dates: start: 20230327
  2. DUPIXENT [Suspect]
     Active Substance: DUPILUMAB
     Indication: Blood immunoglobulin E increased
  3. NUCALA [Suspect]
     Active Substance: MEPOLIZUMAB
     Indication: Blood immunoglobulin E increased
     Dosage: UNK

REACTIONS (2)
  - Eosinophilia [Unknown]
  - Product use in unapproved indication [Unknown]

NARRATIVE: CASE EVENT DATE: 20230327
